FAERS Safety Report 6076504-5 (Version None)
Quarter: 2009Q1

REPORT INFORMATION
  Report Type: 
  Country: None (occurrence: None)
  Receive Date: 20090213
  Receipt Date: 20090202
  Transmission Date: 20090719
  Serious: Yes (Other)
  Sender: FDA-Public Use
  Company Number: US-JNJFOC-20090200564

PATIENT
  Sex: Male
  Weight: 41.73 kg

DRUGS (7)
  1. REMICADE [Suspect]
     Route: 042
  2. REMICADE [Suspect]
     Route: 042
  3. REMICADE [Suspect]
     Route: 042
  4. REMICADE [Suspect]
     Route: 042
  5. REMICADE [Suspect]
     Indication: CROHN'S DISEASE
     Route: 042
  6. PREVACID [Concomitant]
  7. BENTYL [Concomitant]
     Indication: ABDOMINAL PAIN

REACTIONS (3)
  - ABDOMINAL PAIN [None]
  - AMNESIA [None]
  - DRUG INEFFECTIVE [None]
